FAERS Safety Report 8345948-0 (Version None)
Quarter: 2012Q2

REPORT INFORMATION
  Report Type: 
  Country: None (occurrence: None)
  Receive Date: 20120507
  Receipt Date: 20120425
  Transmission Date: 20120825
  Serious: Yes (Hospitalization)
  Sender: FDA-Public Use
  Company Number: 2012SP022324

PATIENT
  Age: 64 Year
  Sex: Male

DRUGS (2)
  1. PEG-INTRON [Suspect]
     Indication: HEPATITIS C
     Dosage: 0.5 ML; SC, PO
     Route: 058
     Dates: start: 20120414, end: 20120418
  2. PEG-INTRON [Suspect]
     Indication: HEPATITIS C
     Dosage: 0.5 ML; SC, PO
     Route: 058
     Dates: start: 20120414, end: 20120418

REACTIONS (2)
  - AMMONIA INCREASED [None]
  - DRUG DOSE OMISSION [None]
